FAERS Safety Report 7978082-X (Version None)
Quarter: 2011Q4

REPORT INFORMATION
  Report Type: 
  Country: None (occurrence: None)
  Receive Date: 20111214
  Receipt Date: 20111212
  Transmission Date: 20120403
  Serious: Yes (Hospitalization)
  Sender: FDA-Public Use
  Company Number: US-SHIRE-ALL1-2011-04549

PATIENT
  Sex: Male

DRUGS (1)
  1. ELAPRASE [Suspect]
     Indication: MUCOPOLYSACCHARIDOSIS II
     Dosage: 36 MG, 1X/WEEK (6 VIALS WEEKLY)
     Route: 041
     Dates: start: 20061108

REACTIONS (2)
  - RENAL FAILURE [None]
  - PNEUMONIA [None]
